FAERS Safety Report 6235632-1 (Version None)
Quarter: 2009Q2

REPORT INFORMATION
  Report Type: 
  Country: None (occurrence: None)
  Receive Date: 20090616
  Receipt Date: 20080226
  Transmission Date: 20091009
  Serious: Yes (Other)
  Sender: FDA-Public Use
  Company Number: 2008US000619

PATIENT
  Age: 31 Year
  Sex: Female

DRUGS (1)
  1. ADENOCARD [Suspect]
     Indication: TACHYCARDIA
     Dosage: 3 MG, IV BOLUS, 6 MG, IV BOLUS, 12 MG, IV BOLUS
     Route: 040

REACTIONS (1)
  - ATRIAL FIBRILLATION [None]
